FAERS Safety Report 7948222-7 (Version None)
Quarter: 2011Q4

REPORT INFORMATION
  Report Type: 
  Country: None (occurrence: None)
  Receive Date: 20111130
  Receipt Date: 20111116
  Transmission Date: 20120403
  Serious: Yes (Death, Hospitalization)
  Sender: FDA-Public Use
  Company Number: US-CELGENEUS-163-21880-11073208

PATIENT
  Sex: Female

DRUGS (16)
  1. HYDROCODONE [Concomitant]
     Route: 065
  2. REVLIMID [Suspect]
     Indication: MULTIPLE MYELOMA
     Dosage: 25 MILLIGRAM
     Route: 048
     Dates: start: 20081201
  3. BLOOD TRANSFUSION [Concomitant]
     Route: 041
  4. PAMELOR [Concomitant]
     Route: 065
  5. REVLIMID [Suspect]
     Dosage: 10 MILLIGRAM
     Route: 048
     Dates: start: 20110201
  6. NORVASC [Concomitant]
     Route: 065
  7. VELCADE [Concomitant]
     Route: 065
  8. METOPROLOL TARTRATE [Concomitant]
     Route: 065
  9. PRILOSEC [Concomitant]
     Route: 065
  10. HUMIBID [Concomitant]
     Route: 065
  11. PHENERGAN [Concomitant]
     Route: 065
  12. REVLIMID [Suspect]
     Indication: REFRACTORY CANCER
     Dosage: 15-10MG
     Route: 048
     Dates: start: 20090301, end: 20100101
  13. PRINIVIL [Concomitant]
     Route: 065
  14. ZOCOR [Concomitant]
     Route: 065
  15. REVLIMID [Suspect]
     Dosage: 15 MILLIGRAM
     Route: 048
     Dates: start: 20100801, end: 20100101
  16. RENVELA [Concomitant]
     Dosage: 800 MILLIGRAM
     Route: 065

REACTIONS (4)
  - MULTIPLE MYELOMA [None]
  - RENAL FAILURE CHRONIC [None]
  - FEMUR FRACTURE [None]
  - FALL [None]
